FAERS Safety Report 15686972 (Version 1)
Quarter: 2018Q4

REPORT INFORMATION
  Report Type: Report from Study
  Country: US (occurrence: US)
  Receive Date: 20181204
  Receipt Date: 20181204
  Transmission Date: 20190205
  Serious: Yes (Hospitalization, Other)
  Sender: FDA-Public Use
  Company Number: US-EXELIXIS-XL18418017401

PATIENT
  Age: 65 Year
  Sex: Female

DRUGS (2)
  1. XL184 [Suspect]
     Active Substance: CABOZANTINIB
     Indication: ENDOMETRIAL CANCER
     Dosage: 40 MG, UNK
     Route: 048
     Dates: start: 20180813, end: 20180926
  2. NIVOLUMAB [Suspect]
     Active Substance: NIVOLUMAB
     Indication: ENDOMETRIAL CANCER
     Dosage: 240 MG, UNK
     Route: 042
     Dates: start: 20180813, end: 20180912

REACTIONS (2)
  - Pleural effusion [Unknown]
  - Acute kidney injury [Unknown]

NARRATIVE: CASE EVENT DATE: 20181005
